FAERS Safety Report 4394201-9 (Version None)
Quarter: 2004Q3

REPORT INFORMATION
  Report Type: 
  Country: None (occurrence: None)
  Receive Date: 20040712
  Receipt Date: 20040705
  Transmission Date: 20050211
  Serious: Yes (Disabling, Congenital Anomaly)
  Sender: FDA-Public Use
  Company Number: FR-BRISTOL-MYERS SQUIBB COMPANY-12632113

PATIENT

DRUGS (4)
  1. SUSTIVA [Suspect]
     Dosage: EXPOSURE BEGAN AT CONCEPTION
     Route: 064
     Dates: end: 20040102
  2. COMBIVIR [Suspect]
     Dosage: EXPOSURE BEGAN AT CONCEPTION
     Route: 064
     Dates: end: 20040102
  3. KALETRA [Suspect]
     Route: 064
     Dates: start: 20040129
  4. SUBUTEX [Suspect]
     Route: 064

REACTIONS (3)
  - CONGENITAL ANOMALY [None]
  - POLYHYDRAMNIOS [None]
  - PREGNANCY [None]
